FAERS Safety Report 21513336 (Version 1)
Quarter: 2022Q4

REPORT INFORMATION
  Report Type: Spontaneous
  Country: US (occurrence: None)
  Receive Date: 20221026
  Receipt Date: 20221026
  Transmission Date: 20230113
  Serious: Yes (Hospitalization, Disabling)
  Sender: FDA-Public Use
  Company Number: None

PATIENT
  Age: 34 Year
  Sex: Female

DRUGS (6)
  1. EMGALITY [Suspect]
     Active Substance: GALCANEZUMAB-GNLM
     Indication: Migraine
     Dosage: 120MG Q 30DAYS SQ
     Route: 058
     Dates: start: 20220829
  2. BUPROPION [Concomitant]
     Active Substance: BUPROPION
  3. BUTORPHANOL [Concomitant]
     Active Substance: BUTORPHANOL
  4. GABAPENTIN [Concomitant]
     Active Substance: GABAPENTIN
  5. OMEPRAZOLE [Concomitant]
     Active Substance: OMEPRAZOLE
  6. ZYRTEC [Concomitant]
     Active Substance: CETIRIZINE HYDROCHLORIDE

REACTIONS (1)
  - Haemoptysis [None]

NARRATIVE: CASE EVENT DATE: 20221025
